FAERS Safety Report 7763684-6 (Version None)
Quarter: 2011Q3

REPORT INFORMATION
  Report Type: 
  Country: None (occurrence: None)
  Receive Date: 20110921
  Receipt Date: 20110912
  Transmission Date: 20111222
  Serious: No
  Sender: FDA-Public Use
  Company Number: US-BIOGENIDEC-2011BI035209

PATIENT
  Age: 49 Year
  Sex: Female

DRUGS (2)
  1. INHALER (NOS) [Concomitant]
     Indication: ASTHMA
  2. TYSABRI [Suspect]
     Indication: MULTIPLE SCLEROSIS
     Route: 042
     Dates: start: 20110707

REACTIONS (3)
  - HEADACHE [None]
  - DYSPNOEA [None]
  - NASOPHARYNGITIS [None]
